FAERS Safety Report 8386761-8 (Version None)
Quarter: 2012Q2

REPORT INFORMATION
  Report Type: 
  Country: None (occurrence: None)
  Receive Date: 20120525
  Receipt Date: 20120517
  Transmission Date: 20120825
  Serious: Yes (Hospitalization)
  Sender: FDA-Public Use
  Company Number: JP-SANOFI-AVENTIS-2012SA035482

PATIENT
  Age: 55 Year
  Sex: Female
  Weight: 51 kg

DRUGS (7)
  1. ZOLPIDEM [Suspect]
     Indication: INSOMNIA
     Route: 048
     Dates: start: 20120420
  2. OXALIPLATIN [Suspect]
     Indication: GASTRIC CANCER
     Dosage: INJECTION
     Route: 041
     Dates: start: 20120427, end: 20120427
  3. ACETAMINOPHEN [Suspect]
     Indication: CANCER PAIN
     Route: 048
     Dates: start: 20120412
  4. MAGNESIUM SULFATE [Suspect]
     Indication: CONSTIPATION
     Route: 048
     Dates: start: 20120501
  5. TS-1 [Suspect]
     Indication: GASTRIC CANCER
     Route: 048
     Dates: start: 20120427, end: 20120504
  6. TRAMADOL HYDROCHLORIDE [Suspect]
     Indication: CANCER PAIN
     Route: 048
     Dates: start: 20120427
  7. LEUCOVORIN CALCIUM [Suspect]
     Indication: GASTRIC CANCER
     Route: 048
     Dates: start: 20120427, end: 20120504

REACTIONS (1)
  - DEEP VEIN THROMBOSIS [None]
